FAERS Safety Report 13978895 (Version 3)
Quarter: 2019Q1

REPORT INFORMATION
  Report Type: Report from Study
  Country: None (occurrence: US)
  Receive Date: 20170915
  Receipt Date: 20190107
  Transmission Date: 20190417
  Serious: Yes (Hospitalization)
  Sender: FDA-Public Use
  Company Number: US-ABBVIE-17K-163-2099652-00

PATIENT
  Sex: Female

DRUGS (1)
  1. HUMIRA [Suspect]
     Active Substance: ADALIMUMAB
     Indication: CROHN^S DISEASE
     Route: 058
     Dates: start: 2014

REACTIONS (7)
  - Depression [Unknown]
  - Diarrhoea [Unknown]
  - Pain [Unknown]
  - Uterine perforation [Unknown]
  - Pyelonephritis [Unknown]
  - Uterine polyp [Unknown]
  - Procedural complication [Unknown]
